FAERS Safety Report 6198337-1 (Version None)
Quarter: 2009Q2

REPORT INFORMATION
  Report Type: 
  Country: None (occurrence: None)
  Receive Date: 20090521
  Receipt Date: 20090514
  Transmission Date: 20091009
  Serious: Yes (Other)
  Sender: FDA-Public Use
  Company Number: GB-JNJFOC-20090503347

PATIENT
  Sex: Female
  Weight: 60 kg

DRUGS (6)
  1. REMICADE [Suspect]
     Indication: RHEUMATOID ARTHRITIS
     Route: 042
  2. PREDNISOLONE [Concomitant]
  3. ACTONEL [Concomitant]
  4. CALCI-CHEW [Concomitant]
  5. IBUPROFEN [Concomitant]
  6. LANSOPRAZOLE [Concomitant]

REACTIONS (1)
  - BREAST CANCER IN SITU [None]
